FAERS Safety Report 7634753-6 (Version None)
Quarter: 2011Q3

REPORT INFORMATION
  Report Type: 
  Country: None (occurrence: None)
  Receive Date: 20110726
  Receipt Date: 20110720
  Transmission Date: 20111222
  Serious: Yes (Hospitalization)
  Sender: FDA-Public Use
  Company Number: US-BIOGENIDEC-2011BI026790

PATIENT
  Age: 69 Year
  Sex: Male

DRUGS (3)
  1. CLONAZEPAM [Concomitant]
     Indication: VISUAL IMPAIRMENT
  2. DILANTIN [Concomitant]
     Indication: CONVULSION
  3. TYSABRI [Suspect]
     Indication: MULTIPLE SCLEROSIS
     Route: 042
     Dates: start: 20100908

REACTIONS (3)
  - FOOD POISONING [None]
  - APHASIA [None]
  - CONSTIPATION [None]
